FAERS Safety Report 15388723 (Version 2)
Quarter: 2018Q4

REPORT INFORMATION
  Report Type: Report from Study
  Country: US (occurrence: US)
  Receive Date: 20180916
  Receipt Date: 20181115
  Transmission Date: 20190204
  Serious: Yes (Other)
  Sender: FDA-Public Use
  Company Number: US-BIOGEN-2013BI011736

PATIENT
  Sex: Female

DRUGS (15)
  1. AVONEX [Suspect]
     Active Substance: INTERFERON BETA-1A
     Indication: MULTIPLE SCLEROSIS
     Route: 030
     Dates: start: 20100513, end: 20110701
  2. AVONEX [Suspect]
     Active Substance: INTERFERON BETA-1A
     Route: 030
     Dates: start: 20120224, end: 20140909
  3. VITAMIN D3 [Concomitant]
     Active Substance: CHOLECALCIFEROL
     Indication: PRODUCT USED FOR UNKNOWN INDICATION
     Route: 065
  4. NALTREXONE HYDROCHLORIDE. [Concomitant]
     Active Substance: NALTREXONE HYDROCHLORIDE
     Indication: PRODUCT USED FOR UNKNOWN INDICATION
     Route: 065
  5. ZINC PICOLINATE [Concomitant]
     Active Substance: ZINC PICOLINATE
     Indication: PRODUCT USED FOR UNKNOWN INDICATION
     Route: 065
  6. AMOXICILLIN. [Concomitant]
     Active Substance: AMOXICILLIN
     Indication: PRODUCT USED FOR UNKNOWN INDICATION
     Route: 065
  7. LOSARTAN POTASSIUM. [Concomitant]
     Active Substance: LOSARTAN POTASSIUM
     Indication: PRODUCT USED FOR UNKNOWN INDICATION
     Route: 065
  8. OMEGA 3 [Concomitant]
     Active Substance: OMEGA-3 FATTY ACIDS
     Indication: PRODUCT USED FOR UNKNOWN INDICATION
     Route: 065
  9. VITAMIN C [Concomitant]
     Active Substance: ASCORBIC ACID
     Indication: PRODUCT USED FOR UNKNOWN INDICATION
     Route: 065
  10. AVONEX [Suspect]
     Active Substance: INTERFERON BETA-1A
     Route: 030
  11. GUAIFENESIN. [Concomitant]
     Active Substance: GUAIFENESIN
     Indication: PRODUCT USED FOR UNKNOWN INDICATION
     Route: 065
  12. ZYRTEC [Concomitant]
     Active Substance: CETIRIZINE HYDROCHLORIDE
     Indication: PRODUCT USED FOR UNKNOWN INDICATION
     Route: 065
  13. AVONEX [Suspect]
     Active Substance: INTERFERON BETA-1A
     Route: 030
  14. CLARITIN [Concomitant]
     Active Substance: LORATADINE
     Indication: PRODUCT USED FOR UNKNOWN INDICATION
     Route: 065
  15. METANX [Concomitant]
     Active Substance: LEVOMEFOLATE CALCIUM\METHYLCOBALAMIN\PYRIDOXAL PHOSPHATE ANHYDROUS
     Indication: PRODUCT USED FOR UNKNOWN INDICATION
     Route: 065

REACTIONS (12)
  - Off label use [Unknown]
  - Insomnia [Recovered/Resolved]
  - Weight decreased [Recovered/Resolved]
  - Gastroenteritis viral [Recovered/Resolved]
  - Paralysis [Recovered/Resolved]
  - Influenza like illness [Unknown]
  - Vein collapse [Recovered/Resolved]
  - Gastrooesophageal reflux disease [Recovered/Resolved with Sequelae]
  - Lyme disease [Not Recovered/Not Resolved]
  - Intentional product misuse [Unknown]
  - Gastritis [Recovered/Resolved]
  - Pain [Recovered/Resolved with Sequelae]

NARRATIVE: CASE EVENT DATE: 2012
